FAERS Safety Report 4838126-0 (Version None)
Quarter: 2005Q4

REPORT INFORMATION
  Report Type: 
  Country: None (occurrence: None)
  Receive Date: 20051118
  Receipt Date: 20051107
  Transmission Date: 20060501
  Serious: Yes (Hospitalization)
  Sender: FDA-Public Use
  Company Number: 200510103BSV

PATIENT
  Age: 69 Year
  Sex: Male

DRUGS (12)
  1. GAMIMUNE N 10% [Suspect]
     Indication: VASCULITIS
     Dosage: SEE IMAGE
     Route: 042
     Dates: start: 20030101, end: 20050101
  2. GAMIMUNE N 10% [Suspect]
  3. GAMIMUNE N 10% [Suspect]
  4. MIXTARD HUMAN 70/30 [Concomitant]
  5. COZAAR [Concomitant]
  6. FOSAMAX [Concomitant]
  7. NORVASC [Concomitant]
  8. BEHEPAN [Concomitant]
  9. ALVEDON [Concomitant]
  10. TENORMIN [Concomitant]
  11. KETOGAN NOVUM [Concomitant]
  12. FUROSEMIDE [Concomitant]

REACTIONS (5)
  - DEEP VEIN THROMBOSIS [None]
  - JOINT SWELLING [None]
  - PULMONARY EMBOLISM [None]
  - PULMONARY INFARCTION [None]
  - THROMBOPHLEBITIS [None]
